FAERS Safety Report 18076944 (Version 1)
Quarter: 2020Q3

REPORT INFORMATION
  Report Type: Spontaneous
  Country: US (occurrence: US)
  Receive Date: 20200728
  Receipt Date: 20200728
  Transmission Date: 20201103
  Serious: No
  Sender: FDA-Public Use
  Company Number: US-TEVA-2020-US-1805478

PATIENT
  Age: 32 Year
  Sex: Female

DRUGS (1)
  1. DEXTROAMPHET SACCHARAT, AMPHET ASPARTATE, DEXTROAMPHET SULFATE AND AMPHET SULFAT [Suspect]
     Active Substance: AMPHETAMINE ASPARTATE\AMPHETAMINE SULFATE\DEXTROAMPHETAMINE SACCHARATE\DEXTROAMPHETAMINE SULFATE
     Dosage: SHE SPLITS THE TABLETS TO TAKE 2.5 MG PER DAY
     Route: 065
     Dates: start: 20200703

REACTIONS (6)
  - Oral pruritus [Not Recovered/Not Resolved]
  - Product substitution issue [Unknown]
  - Pruritus [Not Recovered/Not Resolved]
  - Drug intolerance [Unknown]
  - Chest pain [Not Recovered/Not Resolved]
  - Wrong technique in product usage process [Unknown]

NARRATIVE: CASE EVENT DATE: 202007
